FAERS Safety Report 7652193-0 (Version None)
Quarter: 2011Q3

REPORT INFORMATION
  Report Type: 
  Country: None (occurrence: None)
  Receive Date: 20110803
  Receipt Date: 20101015
  Transmission Date: 20111222
  Serious: No
  Sender: FDA-Public Use
  Company Number: US-BAYER-201039833NA

PATIENT
  Age: 29 Year
  Sex: Female

DRUGS (1)
  1. MIRENA [Suspect]
     Indication: CONTRACEPTION
     Dosage: 20 ?G/D, CONT
     Route: 015
     Dates: start: 20091201

REACTIONS (9)
  - AMENORRHOEA [None]
  - ACNE [None]
  - VAGINAL DISCHARGE [None]
  - DEPRESSION [None]
  - ABDOMINAL DISTENSION [None]
  - WEIGHT INCREASED [None]
  - URTICARIA [None]
  - HEADACHE [None]
  - ABDOMINAL PAIN [None]
